FAERS Safety Report 10378758 (Version 1)
Quarter: 2014Q3

REPORT INFORMATION
  Report Type: Spontaneous
  Country: US (occurrence: None)
  Receive Date: 20140811
  Receipt Date: 20140811
  Transmission Date: 20150326
  Serious: Yes (Life-Threatening, Hospitalization, Disabling)
  Sender: FDA-Public Use
  Company Number: None

PATIENT
  Age: 53 Year
  Sex: Male
  Weight: 95.26 kg

DRUGS (1)
  1. KENALOG [Suspect]
     Active Substance: TRIAMCINOLONE ACETONIDE
     Indication: INFLAMMATION
     Dosage: 1 ML 1 TIME SHOULDER/WRIST AREA
     Dates: start: 20140626, end: 20140626

REACTIONS (10)
  - Thermal burn [None]
  - Anxiety [None]
  - Myalgia [None]
  - Ligament rupture [None]
  - Hypoaesthesia [None]
  - No therapeutic response [None]
  - Agitation [None]
  - Disorientation [None]
  - Dizziness [None]
  - Hypertension [None]

NARRATIVE: CASE EVENT DATE: 20140626
